FAERS Safety Report 4684881-2 (Version None)
Quarter: 2005Q2

REPORT INFORMATION
  Report Type: 
  Country: None (occurrence: None)
  Receive Date: 20050327
  Receipt Date: 20050328
  Transmission Date: 20051028
  Serious: No
  Sender: FDA-Public Use
  Company Number: PHEH2005US03654

PATIENT
  Age: 67 Year
  Sex: Male
  Weight: 104.3 kg

DRUGS (2)
  1. ZELNORM [Suspect]
     Indication: CONSTIPATION
     Dosage: 6 MG, BID, ORAL
     Route: 048
     Dates: start: 20050201, end: 20050327
  2. WARFARIN SODIUM [Concomitant]

REACTIONS (7)
  - ABDOMINAL PAIN [None]
  - CONDITION AGGRAVATED [None]
  - DIZZINESS [None]
  - FLATULENCE [None]
  - NAUSEA [None]
  - RASH [None]
  - WEIGHT DECREASED [None]
